FAERS Safety Report 17107403 (Version 3)
Quarter: 2020Q1

REPORT INFORMATION
  Report Type: Report from Study
  Country: CA (occurrence: CA)
  Receive Date: 20191203
  Receipt Date: 20200130
  Transmission Date: 20200409
  Serious: Yes (Other)
  Sender: FDA-Public Use
  Company Number: NVSC2019CA053957

PATIENT
  Age: 60 Year
  Sex: Male

DRUGS (1)
  1. ERELZI [Suspect]
     Active Substance: ETANERCEPT-SZZS
     Indication: ANKYLOSING SPONDYLITIS
     Dosage: 50 MG, QW
     Route: 058
     Dates: start: 20191126

REACTIONS (7)
  - Temporomandibular joint syndrome [Unknown]
  - Sinusitis [Unknown]
  - Ear pain [Unknown]
  - Bowel movement irregularity [Unknown]
  - Blood pressure systolic increased [Unknown]
  - Abdominal pain upper [Unknown]
  - Urge incontinence [Unknown]

NARRATIVE: CASE EVENT DATE: 20191126
